FAERS Safety Report 6463137-1 (Version None)
Quarter: 2009Q4

REPORT INFORMATION
  Report Type: 
  Country: None (occurrence: None)
  Receive Date: 20091123
  Receipt Date: 20091105
  Transmission Date: 20100525
  Serious: Yes (Hospitalization)
  Sender: FDA-Public Use
  Company Number: AVE_01190_2009

PATIENT
  Age: 30 Year
  Sex: Female

DRUGS (1)
  1. NICOTINE TRANSDERMAL PATCHES (GENERIC MANUFACTURER UNKNOWN) 21 MG [Suspect]
     Indication: SMOKING CESSATION THERAPY
     Dosage: (21 MG QD, TRANSDERMAL)
     Route: 062
     Dates: start: 20080101, end: 20090101

REACTIONS (1)
  - PNEUMONIA [None]
